FAERS Safety Report 19627052 (Version 1)
Quarter: 2021Q3

REPORT INFORMATION
  Report Type: Spontaneous
  Country: ES (occurrence: ES)
  Receive Date: 20210728
  Receipt Date: 20210728
  Transmission Date: 20211014
  Serious: Yes (Hospitalization)
  Sender: FDA-Public Use
  Company Number: ES-OTSUKA-2021_025979

PATIENT
  Age: 56 Year
  Sex: Male

DRUGS (2)
  1. DESVENLAFAXINA [DESVENLAFAXINE] [Suspect]
     Active Substance: DESVENLAFAXINE
     Indication: DEPRESSION
     Dosage: 1?0?0
     Route: 048
     Dates: start: 20210318, end: 20210615
  2. ARIPIPRAZOLE. [Suspect]
     Active Substance: ARIPIPRAZOLE
     Indication: DEPRESSION
     Dosage: 1?0?0
     Route: 048
     Dates: start: 20210526, end: 20210615

REACTIONS (2)
  - Product use in unapproved indication [Unknown]
  - Reversible cerebral vasoconstriction syndrome [Recovered/Resolved with Sequelae]

NARRATIVE: CASE EVENT DATE: 20210526
